FAERS Safety Report 19318751 (Version 3)
Quarter: 2021Q2

REPORT INFORMATION
  Report Type: Report from Study
  Country: US (occurrence: US)
  Receive Date: 20210527
  Receipt Date: 20210615
  Transmission Date: 20210717
  Serious: Yes (Death)
  Sender: FDA-Public Use
  Company Number: US-PFIZER INC-2021575284

PATIENT
  Age: 61 Year
  Sex: Male
  Weight: 112 kg

DRUGS (8)
  1. VITAMIN B [Concomitant]
     Active Substance: VITAMIN B
     Indication: SUPPLEMENTATION THERAPY
     Dosage: UNK, DAILY
     Route: 048
     Dates: start: 2018
  2. ACETAMINOPHEN;HYDROCODONE [Concomitant]
     Active Substance: ACETAMINOPHEN\HYDROCODONE
     Indication: PAIN
     Dosage: UNK, Q6HR, PRN
     Route: 048
     Dates: start: 2018, end: 20210518
  3. KAOPECTATE [KAOLIN;PECTIN] [Concomitant]
     Indication: DYSPEPSIA
     Dosage: UNK, AS NEEDED (PRN)
     Route: 048
     Dates: start: 20210505
  4. TALAZOPARIB. [Suspect]
     Active Substance: TALAZOPARIB
     Dosage: UNK
  5. POTASSIUM CHLORIDE. [Concomitant]
     Active Substance: POTASSIUM CHLORIDE
     Indication: HYPOKALAEMIA
     Dosage: UNK, DAILY
     Route: 048
     Dates: start: 2019
  6. IMODIUM [Concomitant]
     Active Substance: LOPERAMIDE HYDROCHLORIDE
     Indication: DIARRHOEA
     Dosage: UNK, AS NEEDED (PRN)
     Route: 048
     Dates: start: 2018
  7. PEPCID AC [Concomitant]
     Active Substance: FAMOTIDINE
     Indication: GASTROOESOPHAGEAL REFLUX DISEASE
     Dosage: 20 MG, DAILY
     Route: 048
     Dates: start: 202011, end: 20210520
  8. PEPCID AC [Concomitant]
     Active Substance: FAMOTIDINE
     Dosage: 20 MG, 2X/DAY(BID)
     Route: 048
     Dates: start: 20210521

REACTIONS (1)
  - Biliary obstruction [Fatal]

NARRATIVE: CASE EVENT DATE: 20210517
